FAERS Safety Report 5558565-2 (Version None)
Quarter: 2007Q4

REPORT INFORMATION
  Report Type: 
  Country: None (occurrence: None)
  Receive Date: 20071214
  Receipt Date: 20070831
  Transmission Date: 20080405
  Serious: No
  Sender: FDA-Public Use
  Company Number: US-ABBOTT-07P-163-0416019-00

PATIENT
  Sex: Female
  Weight: 102 kg

DRUGS (11)
  1. HUMIRA [Suspect]
     Indication: RHEUMATOID ARTHRITIS
     Dosage: SYRINGE
     Route: 058
     Dates: start: 20020101, end: 20070401
  2. HUMIRA [Suspect]
     Dosage: PEN
     Route: 058
     Dates: start: 20070401
  3. LEVOTHYROXINE SODIUM [Concomitant]
     Indication: HORMONE REPLACEMENT THERAPY
     Route: 048
     Dates: start: 19850101
  4. CELECOXIB [Concomitant]
     Indication: RHEUMATOID ARTHRITIS
     Route: 048
     Dates: start: 19870101
  5. SERETIDE [Concomitant]
     Indication: RHEUMATOID ARTHRITIS
     Route: 055
     Dates: start: 19870101
  6. COMBIVENT [Concomitant]
     Indication: RHEUMATOID ARTHRITIS
     Route: 055
     Dates: start: 19870101
  7. MONTELUKAST SODIUM [Concomitant]
     Indication: RHEUMATOID ARTHRITIS
     Route: 048
     Dates: start: 19870101
  8. METHOTREXATE [Concomitant]
     Indication: RHEUMATOID ARTHRITIS
     Route: 048
     Dates: start: 20030101
  9. HYDROXYCHLOROQUINE PHOSPHATE [Concomitant]
     Indication: SYSTEMIC LUPUS ERYTHEMATOSUS
     Route: 048
     Dates: start: 19970101
  10. FOLIC ACID [Concomitant]
     Indication: MOUTH ULCERATION
     Route: 048
     Dates: start: 19990101
  11. FOLIC ACID [Concomitant]
     Indication: SYSTEMIC LUPUS ERYTHEMATOSUS

REACTIONS (5)
  - INJECTION SITE ERYTHEMA [None]
  - INJECTION SITE NODULE [None]
  - INJECTION SITE REACTION [None]
  - TOOTH ABSCESS [None]
  - TYPE 2 DIABETES MELLITUS [None]
